FAERS Safety Report 10684368 (Version 1)
Quarter: 2014Q4

REPORT INFORMATION
  Report Type: Spontaneous
  Country: FR (occurrence: FR)
  Receive Date: 20141231
  Receipt Date: 20141231
  Transmission Date: 20150529
  Serious: Yes (Hospitalization)
  Sender: FDA-Public Use
  Company Number: FR-ROCHE-1515654

PATIENT
  Age: 77 Year
  Sex: Male

DRUGS (10)
  1. KARDEGIC [Suspect]
     Active Substance: ASPIRIN LYSINE
     Indication: HYPERTENSIVE HEART DISEASE
     Route: 048
     Dates: start: 201411
  2. MECIR [Concomitant]
     Active Substance: TAMSULOSIN HYDROCHLORIDE
     Route: 048
  3. TARGOCID [Suspect]
     Active Substance: TEICOPLANIN
     Indication: PYELONEPHRITIS
     Route: 042
     Dates: start: 20141119, end: 20141128
  4. RAMIPRIL. [Suspect]
     Active Substance: RAMIPRIL
     Indication: HYPERTENSIVE HEART DISEASE
     Route: 048
     Dates: start: 201411
  5. INVANZ [Concomitant]
     Active Substance: ERTAPENEM SODIUM
     Route: 042
     Dates: start: 20141107, end: 20141113
  6. INEXIUM [Concomitant]
     Active Substance: ESOMEPRAZOLE
     Route: 048
  7. ROCEPHINE [Suspect]
     Active Substance: CEFTRIAXONE SODIUM
     Indication: PYELONEPHRITIS
     Route: 042
     Dates: start: 20141113, end: 20141128
  8. ZYLORIC [Concomitant]
     Active Substance: ALLOPURINOL
     Route: 048
  9. IMOVANE [Concomitant]
     Active Substance: ZOPICLONE
     Route: 048
  10. LASILIX [Concomitant]
     Active Substance: FUROSEMIDE
     Route: 048

REACTIONS (1)
  - Acute kidney injury [Recovered/Resolved]

NARRATIVE: CASE EVENT DATE: 20141126
